FAERS Safety Report 6609744-4 (Version None)
Quarter: 2010Q1

REPORT INFORMATION
  Report Type: 
  Country: None (occurrence: None)
  Receive Date: 20100302
  Receipt Date: 20100118
  Transmission Date: 20100710
  Serious: Yes (Hospitalization, Disabling, Other)
  Sender: FDA-Public Use
  Company Number: US-BAXTER-2009BH001617

PATIENT
  Age: 55 Year
  Sex: Female
  Weight: 64 kg

DRUGS (13)
  1. HEPARIN SODIUM 1,000 UNITS AND SODIUM CHLORIDE 0.9% [Suspect]
     Indication: DRUG USE FOR UNKNOWN INDICATION
     Route: 042
     Dates: start: 20080412
  2. PROTEIN SUPPLEMENTS [Concomitant]
     Indication: SUPPLEMENTATION THERAPY
     Route: 065
  3. MULTI-VITAMINS [Concomitant]
     Indication: DRUG USE FOR UNKNOWN INDICATION
     Route: 065
  4. PREMARIN [Concomitant]
     Indication: DRUG USE FOR UNKNOWN INDICATION
     Route: 065
  5. SIMVASTATIN [Concomitant]
     Indication: DRUG USE FOR UNKNOWN INDICATION
     Route: 065
  6. FISH OIL [Concomitant]
     Indication: DRUG USE FOR UNKNOWN INDICATION
     Route: 065
  7. NITROGLYCERIN COMP. [Concomitant]
     Indication: DRUG USE FOR UNKNOWN INDICATION
     Route: 065
  8. BACLOFEN [Concomitant]
     Indication: DRUG USE FOR UNKNOWN INDICATION
     Route: 065
  9. ZYPREXA [Concomitant]
     Indication: DRUG USE FOR UNKNOWN INDICATION
     Route: 065
  10. HYDROCODONE [Concomitant]
     Indication: DRUG USE FOR UNKNOWN INDICATION
     Route: 065
  11. ASPIRIN [Concomitant]
     Indication: DRUG USE FOR UNKNOWN INDICATION
     Route: 065
  12. AMBIEN [Concomitant]
     Indication: DRUG USE FOR UNKNOWN INDICATION
     Route: 065
  13. LOVAZA [Concomitant]
     Indication: DRUG USE FOR UNKNOWN INDICATION
     Route: 065

REACTIONS (30)
  - ABDOMINAL WALL CYST [None]
  - AMNESIA [None]
  - ANXIETY [None]
  - ASTHENIA [None]
  - AZOTAEMIA [None]
  - BACK PAIN [None]
  - CANDIDIASIS [None]
  - CHEST PAIN [None]
  - COMA [None]
  - DEPRESSION [None]
  - DIARRHOEA [None]
  - DYSPNOEA [None]
  - GASTROINTESTINAL INFECTION [None]
  - GIARDIASIS [None]
  - HEPATIC FAILURE [None]
  - HEPATITIS [None]
  - HERNIA [None]
  - HERPES ZOSTER [None]
  - INFECTION IN AN IMMUNOCOMPROMISED HOST [None]
  - LIVER INJURY [None]
  - MALNUTRITION [None]
  - MENTAL STATUS CHANGES [None]
  - MULTI-ORGAN FAILURE [None]
  - NAUSEA [None]
  - NEURALGIA [None]
  - PAIN IN EXTREMITY [None]
  - PANCREATITIS [None]
  - PANCYTOPENIA [None]
  - RENAL FAILURE ACUTE [None]
  - THROMBOCYTOPENIA [None]
